FAERS Safety Report 17556852 (Version 4)
Quarter: 2020Q3

REPORT INFORMATION
  Report Type: Spontaneous
  Country: US (occurrence: US)
  Receive Date: 20200318
  Receipt Date: 20200703
  Transmission Date: 20201102
  Serious: No
  Sender: FDA-Public Use
  Company Number: US-VERTEX PHARMACEUTICALS-2020-005220

PATIENT
  Sex: Male

DRUGS (4)
  1. CARVEDILOL. [Concomitant]
     Active Substance: CARVEDILOL
  2. TRIKAFTA [Suspect]
     Active Substance: ELEXACAFTOR\IVACAFTOR\TEZACAFTOR
     Indication: CYSTIC FIBROSIS
     Dosage: 2 TABS (100MG ELEXACAFTOR/50MG TEZACAFTOR/75MG IVACAFTOR) QAM AND 1 TAB (150MG IVACAFTOR) QPM
     Route: 048
     Dates: start: 20200205
  3. ELIQUIS [Suspect]
     Active Substance: APIXABAN
     Indication: ATRIAL FIBRILLATION
     Dosage: 2.5 MG
     Route: 065
  4. TRIKAFTA [Suspect]
     Active Substance: ELEXACAFTOR\IVACAFTOR\TEZACAFTOR
     Dosage: REDUCED DOSE
     Route: 048

REACTIONS (7)
  - Dry eye [Recovering/Resolving]
  - Dry throat [Unknown]
  - Nasal congestion [Unknown]
  - Rhinorrhoea [Recovering/Resolving]
  - Dry mouth [Not Recovered/Not Resolved]
  - Paranasal sinus haemorrhage [Recovering/Resolving]
  - Anticoagulation drug level increased [Unknown]

NARRATIVE: CASE EVENT DATE: 2020
